FAERS Safety Report 5954239-4 (Version None)
Quarter: 2008Q4

REPORT INFORMATION
  Report Type: 
  Country: None (occurrence: None)
  Receive Date: 20081117
  Receipt Date: 20081106
  Transmission Date: 20090506
  Serious: Yes (Other)
  Sender: FDA-Public Use
  Company Number: US-JNJFOC-20080704537

PATIENT
  Sex: Female
  Weight: 98.43 kg

DRUGS (8)
  1. REMICADE [Suspect]
     Dosage: ALSO REPORTED AS STOPPED 02-SEP-2008
     Route: 042
  2. REMICADE [Suspect]
     Indication: CROHN'S DISEASE
     Route: 042
  3. ALTACE [Concomitant]
     Indication: HYPERTENSION
  4. LIPITOR [Concomitant]
     Indication: BLOOD CHOLESTEROL INCREASED
  5. PENTASA [Concomitant]
     Indication: CROHN'S DISEASE
  6. PREVACID [Concomitant]
  7. LYRICA [Concomitant]
  8. PREDNISONE TAB [Concomitant]

REACTIONS (1)
  - UTERINE CANCER [None]
